FAERS Safety Report 11186559 (Version 5)
Quarter: 2015Q4

REPORT INFORMATION
  Report Type: Report from Study
  Country: GB (occurrence: GB)
  Receive Date: 20150613
  Receipt Date: 20151118
  Transmission Date: 20160304
  Serious: Yes (Hospitalization)
  Sender: FDA-Public Use
  Company Number: PHFR2014GB006285

PATIENT
  Age: 60 Year
  Sex: Male
  Weight: 78.2 kg

DRUGS (14)
  1. ZOMORPH [Concomitant]
     Active Substance: MORPHINE SULFATE
     Indication: PAIN
     Dosage: 20 MG, UNK
     Route: 048
     Dates: start: 20140702
  2. AFINITOR [Suspect]
     Active Substance: EVEROLIMUS
     Indication: PANCREATIC CARCINOMA METASTATIC
     Dosage: 5 MG, QD
     Route: 048
     Dates: start: 20140716, end: 20140731
  3. AFINITOR [Suspect]
     Active Substance: EVEROLIMUS
     Dosage: UNK
     Route: 048
     Dates: start: 20150225, end: 20150604
  4. CETRIZINE [Concomitant]
     Active Substance: CETIRIZINE HYDROCHLORIDE
     Indication: PRODUCT USED FOR UNKNOWN INDICATION
     Dosage: 10 MG, QD
     Route: 048
     Dates: start: 2004
  5. GLICLAZIDE [Concomitant]
     Active Substance: GLICLAZIDE
     Indication: DIABETES MELLITUS
     Dosage: 40 MG, QD
     Route: 048
     Dates: start: 2013
  6. METOCLOPRAMIDE. [Concomitant]
     Active Substance: METOCLOPRAMIDE
     Indication: NAUSEA
     Dosage: 30 MG, UNK
     Route: 048
     Dates: start: 20140910
  7. AFINITOR [Suspect]
     Active Substance: EVEROLIMUS
     Dosage: 5 MG, QD
     Route: 048
     Dates: end: 20141209
  8. CANDESARTAN [Concomitant]
     Active Substance: CANDESARTAN
     Indication: HYPERTENSION
     Dosage: 4 MG, QD
     Route: 048
  9. LANSOPRAZOLE. [Concomitant]
     Active Substance: LANSOPRAZOLE
     Indication: PROPHYLAXIS
     Dosage: 30 MG, UNK
     Route: 065
     Dates: start: 2011
  10. AFINITOR [Suspect]
     Active Substance: EVEROLIMUS
     Dosage: UNK
     Route: 048
     Dates: end: 20150818
  11. METFORMIN [Concomitant]
     Active Substance: METFORMIN HYDROCHLORIDE
     Indication: DIABETES MELLITUS
     Dosage: 500 MG, QD
     Route: 065
     Dates: start: 2011
  12. MORPHINE SULPHATE [Concomitant]
     Active Substance: MORPHINE SULFATE
     Indication: PAIN
     Dosage: UNK
     Route: 065
     Dates: start: 20140630
  13. AMLODIPINE [Concomitant]
     Active Substance: AMLODIPINE BESYLATE
     Indication: HYPERTENSION
     Dosage: 10 MG, UNK
     Route: 065
  14. ASPIRIN. [Concomitant]
     Active Substance: ASPIRIN
     Indication: PROPHYLAXIS
     Dosage: 75 MG, QD
     Route: 048
     Dates: start: 2013

REACTIONS (17)
  - Ascites [Recovered/Resolved]
  - Vomiting [Recovered/Resolved]
  - Sepsis [Recovered/Resolved]
  - Gastrointestinal oedema [Unknown]
  - Abdominal distension [Recovered/Resolved]
  - Blood glucose increased [Recovered/Resolved]
  - Constipation [Recovered/Resolved]
  - Decreased appetite [Recovered/Resolved]
  - Rash [Recovered/Resolved]
  - Nausea [Recovered/Resolved]
  - Mucosal inflammation [Recovered/Resolved]
  - Hepatic cancer [Unknown]
  - Mucosal inflammation [Not Recovered/Not Resolved]
  - Dry skin [Recovering/Resolving]
  - Blood glucose increased [Unknown]
  - Liver disorder [Unknown]
  - Mediastinal disorder [Unknown]

NARRATIVE: CASE EVENT DATE: 20140726
